FAERS Safety Report 9935658 (Version 2)
Quarter: 2014Q1

REPORT INFORMATION
  Report Type: Spontaneous
  Country: SI (occurrence: SI)
  Receive Date: 20140228
  Receipt Date: 20140228
  Transmission Date: 20141002
  Serious: Yes (Hospitalization)
  Sender: FDA-Public Use
  Company Number: PHHY2014SI020063

PATIENT
  Age: 70 Year
  Sex: Male

DRUGS (6)
  1. EXELON PATCH [Suspect]
     Indication: PARKINSON^S DISEASE
     Dosage: 9.5 MG, QD (24 HR)
     Route: 062
  2. EXELON PATCH [Suspect]
     Indication: OFF LABEL USE
     Dosage: 13.3 MG, QD (24HR)
     Route: 062
  3. EXELON PATCH [Suspect]
     Dosage: 9.5 MG, QD (24 HR)
     Route: 062
  4. L-DOPA [Concomitant]
     Dosage: UNK
  5. CORYOL [Concomitant]
     Dosage: UNK
  6. XARELTO [Concomitant]
     Dosage: UNK

REACTIONS (2)
  - Pulmonary embolism [Unknown]
  - Urinary incontinence [Recovered/Resolved]
